FAERS Safety Report 14822380 (Version 2)
Quarter: 2018Q2

REPORT INFORMATION
  Report Type: Spontaneous
  Country: US (occurrence: US)
  Receive Date: 20180427
  Receipt Date: 20180606
  Transmission Date: 20180711
  Serious: Yes (Other)
  Sender: FDA-Public Use
  Company Number: US-PFIZER INC-2018170648

PATIENT
  Age: 47 Year
  Sex: Male

DRUGS (5)
  1. METHOTREXATE SODIUM. [Suspect]
     Active Substance: METHOTREXATE SODIUM
     Dosage: 17.5 MG, WEEKLY TOTAL DOSE (0.35 ML, 2X/WEEK)
     Route: 058
  2. METHOTREXATE SODIUM. [Suspect]
     Active Substance: METHOTREXATE SODIUM
     Indication: PSORIATIC ARTHROPATHY
     Dosage: 7.5 MG, 2X/WEEK (TWICE WEEKLY)
     Dates: start: 201501
  3. ENBREL [Concomitant]
     Active Substance: ETANERCEPT
     Indication: PSORIATIC ARTHROPATHY
     Dosage: UNK
     Dates: start: 2009, end: 201708
  4. METHOTREXATE SODIUM. [Suspect]
     Active Substance: METHOTREXATE SODIUM
     Indication: PSORIASIS
     Dosage: UNKNOWN DOSE
     Dates: start: 2008, end: 2014
  5. METHOTREXATE SODIUM. [Suspect]
     Active Substance: METHOTREXATE SODIUM
     Dosage: WEEKLY (7.5 - 25 MG VARIED OVER THE YEARS)
     Route: 058
     Dates: start: 2008, end: 201701

REACTIONS (8)
  - Condition aggravated [Unknown]
  - Nausea [Unknown]
  - Psoriatic arthropathy [Unknown]
  - Hepatic steatosis [Recovering/Resolving]
  - Nephrolithiasis [Unknown]
  - Psoriasis [Unknown]
  - Toxicity to various agents [Unknown]
  - Inflammation [Recovering/Resolving]

NARRATIVE: CASE EVENT DATE: 20161118
